FAERS Safety Report 20365531 (Version 1)
Quarter: 2022Q1

REPORT INFORMATION
  Report Type: Spontaneous
  Country: VN (occurrence: VN)
  Receive Date: 20220122
  Receipt Date: 20220122
  Transmission Date: 20220424
  Serious: Yes (Death, Hospitalization)
  Sender: FDA-Public Use
  Company Number: VN-NOVARTISPH-NVSC2022VN012390

PATIENT
  Sex: Female

DRUGS (1)
  1. RIBOCICLIB [Suspect]
     Active Substance: RIBOCICLIB
     Indication: Breast cancer metastatic
     Dosage: UNK
     Route: 065

REACTIONS (7)
  - Death [Fatal]
  - Pneumonia [Unknown]
  - Fatigue [Unknown]
  - Pulmonary fibrosis [Unknown]
  - Leukopenia [Unknown]
  - Pyrexia [Unknown]
  - Fear [Unknown]
